FAERS Safety Report 14569066 (Version 2)
Quarter: 2018Q1

REPORT INFORMATION
  Report Type: Spontaneous
  Country: DE (occurrence: DE)
  Receive Date: 20180223
  Receipt Date: 20180326
  Transmission Date: 20180509
  Serious: Yes (Hospitalization, Other)
  Sender: FDA-Public Use
  Company Number: PHHY2018DE027981

PATIENT
  Sex: Male

DRUGS (2)
  1. ENTRESTO [Suspect]
     Active Substance: SACUBITRIL\VALSARTAN
     Indication: PRODUCT USED FOR UNKNOWN INDICATION
     Dosage: 50 MG (24/26 MG), QD
     Route: 065
     Dates: start: 2017
  2. ENTRESTO [Suspect]
     Active Substance: SACUBITRIL\VALSARTAN
     Dosage: 100 MG, (49/51 MG)
     Route: 065

REACTIONS (10)
  - Inappropriate schedule of drug administration [Unknown]
  - Pneumonia [Unknown]
  - Myocardial infarction [Unknown]
  - Cerebrovascular accident [Unknown]
  - Restlessness [Unknown]
  - Pneumonia [Recovered/Resolved]
  - Fall [Unknown]
  - Underdose [Unknown]
  - Movement disorder [Unknown]
  - Cough [Unknown]

NARRATIVE: CASE EVENT DATE: 2017
